FAERS Safety Report 25669519 (Version 1)
Quarter: 2025Q3

REPORT INFORMATION
  Report Type: Spontaneous
  Country: US (occurrence: None)
  Receive Date: 20250811
  Receipt Date: 20250811
  Transmission Date: 20251021
  Serious: Yes (Other)
  Sender: FDA-CTU
  Company Number: None

PATIENT
  Age: 54 Year
  Sex: Female
  Weight: 58.05 kg

DRUGS (3)
  1. ESTRADIOL [Suspect]
     Active Substance: ESTRADIOL
     Indication: Hormone level abnormal
     Route: 050
     Dates: start: 20241204, end: 20250801
  2. KLONOPIN [Concomitant]
     Active Substance: CLONAZEPAM
  3. BENADRYL [Concomitant]
     Active Substance: DIPHENHYDRAMINE HYDROCHLORIDE

REACTIONS (8)
  - Dyspnoea [None]
  - Dyspepsia [None]
  - Myocardial infarction [None]
  - Nausea [None]
  - Regurgitation [None]
  - Headache [None]
  - Abdominal pain upper [None]
  - Lung disorder [None]

NARRATIVE: CASE EVENT DATE: 20250307
